FAERS Safety Report 8305110-4 (Version None)
Quarter: 2012Q2

REPORT INFORMATION
  Report Type: 
  Country: None (occurrence: None)
  Receive Date: 20120418
  Receipt Date: 20110106
  Transmission Date: 20120825
  Serious: No
  Sender: FDA-Public Use
  Company Number: AEUSA201100002

PATIENT
  Age: 46 Year
  Sex: Female

DRUGS (9)
  1. SODIUM CHLORIDE [Concomitant]
  2. GUAITUSSIN [Concomitant]
  3. ALBUTEROL [Concomitant]
  4. ADVAIR DISKUS 100/50 [Concomitant]
  5. CHANTIX [Concomitant]
  6. NASONEX [Concomitant]
  7. PROLASTIN-C [Suspect]
     Indication: ALPHA-1 ANTI-TRYPSIN DEFICIENCY
     Dosage: 60 MG/KG, QW, IV
     Route: 042
     Dates: start: 20100801
  8. SPIRIVA [Concomitant]
  9. OXYGEN [Concomitant]

REACTIONS (2)
  - INFUSION SITE PHLEBITIS [None]
  - DEHYDRATION [None]
